FAERS Safety Report 25167319 (Version 1)
Quarter: 2025Q2

REPORT INFORMATION
  Report Type: Spontaneous
  Country: US (occurrence: None)
  Receive Date: 20250404
  Receipt Date: 20250404
  Transmission Date: 20250717
  Serious: Yes (Death)
  Sender: FDA-CTU
  Company Number: None

PATIENT
  Age: 73 Year
  Sex: Male

DRUGS (1)
  1. GOCOVRI [Suspect]
     Active Substance: AMANTADINE
     Indication: Parkinson^s disease
     Dosage: 137MG QD ORAL?
     Route: 048
     Dates: start: 20240226, end: 20250301

REACTIONS (1)
  - Hospice care [None]

NARRATIVE: CASE EVENT DATE: 20250301
